FAERS Safety Report 7928930-4 (Version None)
Quarter: 2011Q4

REPORT INFORMATION
  Report Type: 
  Country: None (occurrence: None)
  Receive Date: 20111118
  Receipt Date: 20111109
  Transmission Date: 20120403
  Serious: Yes (Other)
  Sender: FDA-Public Use
  Company Number: US-RB-027372-11

PATIENT
  Sex: Female

DRUGS (7)
  1. KLONOPIN [Concomitant]
     Indication: ANXIETY
     Route: 065
  2. SUBOXONE [Suspect]
     Indication: PRODUCT USED FOR UNKNOWN INDICATION
     Dosage: DOSING INFORMATION UNKNOWN
     Route: 065
  3. SEROQUEL [Concomitant]
     Indication: INSOMNIA
     Dosage: 100 MG AT BEDTIME
     Route: 065
  4. RITALIN [Concomitant]
     Indication: ATTENTION DEFICIT/HYPERACTIVITY DISORDER
     Route: 065
  5. MOTRIN [Concomitant]
     Indication: PRODUCT USED FOR UNKNOWN INDICATION
     Dosage: DURATION OF DRUG IS ONLY NOTED AS YEARS
     Route: 065
  6. PHENERGAN [Concomitant]
     Indication: NAUSEA
     Route: 065
     Dates: start: 20110101
  7. PHENERGAN [Concomitant]
     Indication: VOMITING
     Route: 065
     Dates: start: 20110101

REACTIONS (4)
  - VOMITING [None]
  - PLACENTA PRAEVIA [None]
  - MATERNAL EXPOSURE DURING PREGNANCY [None]
  - NAUSEA [None]
